FAERS Safety Report 10871731 (Version 1)
Quarter: 2015Q1

REPORT INFORMATION
  Report Type: Spontaneous
  Country: US (occurrence: US)
  Receive Date: 20150226
  Receipt Date: 20150226
  Transmission Date: 20150721
  Serious: Yes (Other)
  Sender: FDA-Public Use
  Company Number: US-BAYER-2015-026764

PATIENT
  Age: 56 Year
  Sex: Male
  Weight: 77 kg

DRUGS (1)
  1. ALEVE [Suspect]
     Active Substance: NAPROXEN SODIUM
     Indication: BACK PAIN
     Dosage: 2 DF, PRN
     Route: 048
     Dates: start: 1995, end: 2004

REACTIONS (4)
  - Renal cyst [Not Recovered/Not Resolved]
  - Extra dose administered [Unknown]
  - Gastric disorder [Recovered/Resolved]
  - Haematochezia [Recovered/Resolved]

NARRATIVE: CASE EVENT DATE: 1995
